FAERS Safety Report 17620499 (Version 2)
Quarter: 2025Q2

REPORT INFORMATION
  Report Type: Spontaneous
  Country: IR (occurrence: None)
  Receive Date: 20200403
  Receipt Date: 20250605
  Transmission Date: 20250716
  Serious: Yes (Hospitalization, Other)
  Sender: ORION
  Company Number: IR-MLMSERVICE-20200326-2225919-2

PATIENT
  Age: 68 Year
  Sex: Female

DRUGS (6)
  1. METHOTREXATE [Interacting]
     Active Substance: METHOTREXATE
     Indication: Product used for unknown indication
  2. ASPIRIN [Interacting]
     Active Substance: ASPIRIN
     Indication: Product used for unknown indication
  3. LEVOCARNITINE [Concomitant]
     Active Substance: LEVOCARNITINE
  4. TRIAMTERENE [Concomitant]
     Active Substance: TRIAMTERENE
  5. LOSARTAN [Concomitant]
     Active Substance: LOSARTAN
  6. CARVEDILOL [Concomitant]
     Active Substance: CARVEDILOL

REACTIONS (13)
  - Drug interaction [Recovering/Resolving]
  - Product dispensing error [Recovering/Resolving]
  - Wrong product administered [Recovering/Resolving]
  - Inappropriate schedule of product administration [Recovering/Resolving]
  - Accidental poisoning [Recovering/Resolving]
  - Mouth ulceration [Recovering/Resolving]
  - White blood cell count decreased [Recovering/Resolving]
  - Paraesthesia [Recovering/Resolving]
  - Muscular weakness [Recovering/Resolving]
  - Platelet count decreased [Recovering/Resolving]
  - Ulcer haemorrhage [Recovering/Resolving]
  - Toxicity to various agents [Recovering/Resolving]
  - Movement disorder [Recovering/Resolving]
